FAERS Safety Report 18762874 (Version 1)
Quarter: 2021Q1

REPORT INFORMATION
  Report Type: Spontaneous
  Country: US (occurrence: US)
  Receive Date: 20210120
  Receipt Date: 20210120
  Transmission Date: 20210419
  Serious: No
  Sender: FDA-Public Use
  Company Number: US-ALKERMES INC.-ALK-2020-005737

PATIENT
  Age: 32 Year
  Sex: Female
  Weight: 53.52 kg

DRUGS (1)
  1. VIVITROL [Suspect]
     Active Substance: NALTREXONE
     Indication: ALCOHOLISM
     Dosage: 380 MILLIGRAM, QMO
     Route: 030
     Dates: start: 202011

REACTIONS (6)
  - Emotional distress [Unknown]
  - Nausea [Recovered/Resolved]
  - Migraine [Recovered/Resolved]
  - Insomnia [Unknown]
  - Crying [Unknown]
  - Dizziness [Recovered/Resolved]

NARRATIVE: CASE EVENT DATE: 202011
